FAERS Safety Report 6119770-X (Version None)
Quarter: 2009Q1

REPORT INFORMATION
  Report Type: 
  Country: None (occurrence: None)
  Receive Date: 20090316
  Receipt Date: 20090311
  Transmission Date: 20090719
  Serious: Yes (Death, Other)
  Sender: FDA-Public Use
  Company Number: PH-JNJFOC-20090302368

PATIENT
  Age: 42 Year
  Sex: Female

DRUGS (6)
  1. DORIBAX [Suspect]
     Indication: PNEUMONIA
     Route: 041
  2. AZITHROMYCIN [Concomitant]
  3. CEFUROXIME [Concomitant]
  4. CEFTAZIDIME [Concomitant]
  5. MEFLOXACIN [Concomitant]
  6. AMIODARONE HCL [Concomitant]

REACTIONS (3)
  - ARRHYTHMIA [None]
  - CONVULSION [None]
  - SEPSIS [None]
